FAERS Safety Report 12341252 (Version 1)
Quarter: 2016Q2

REPORT INFORMATION
  Report Type: Spontaneous
  Country: TR (occurrence: TR)
  Receive Date: 20160506
  Receipt Date: 20160506
  Transmission Date: 20160815
  Serious: Yes (Hospitalization)
  Sender: FDA-Public Use
  Company Number: TR-TEVA-657601ISR

PATIENT
  Age: 3 Year
  Sex: Male

DRUGS (5)
  1. ALLOPURINOL. [Concomitant]
     Active Substance: ALLOPURINOL
     Route: 065
  2. COLCHICINE. [Suspect]
     Active Substance: COLCHICINE
     Indication: OVERDOSE
     Dosage: ESTIMATED MAXIMUM DOSAGE WAS 0.2 MG/KG
     Route: 048
  3. FILGRASTIM [Suspect]
     Active Substance: FILGRASTIM
     Route: 058
  4. MEROPENEM. [Concomitant]
     Active Substance: MEROPENEM
     Indication: NEUTROPENIA
     Route: 065
  5. SULBACTAM, AMPICILLIN [Concomitant]
     Indication: PYREXIA
     Route: 065

REACTIONS (19)
  - Accidental poisoning [Recovered/Resolved]
  - Hypokalaemia [Recovered/Resolved]
  - Neutropenia [Recovered/Resolved]
  - Acute prerenal failure [Recovered/Resolved]
  - Overdose [Recovered/Resolved]
  - Depressed level of consciousness [Recovered/Resolved]
  - Bone marrow failure [Recovered/Resolved]
  - Hypophosphataemia [Recovered/Resolved]
  - Liver injury [Recovered/Resolved]
  - Pancytopenia [Recovered/Resolved]
  - Rhabdomyolysis [Recovered/Resolved]
  - Hypovolaemia [Recovered/Resolved]
  - Toxicity to various agents [Recovered/Resolved]
  - Disseminated intravascular coagulation [Recovered/Resolved]
  - Hyponatraemia [Recovered/Resolved]
  - Vomiting [Recovered/Resolved]
  - Haemorrhage [Recovered/Resolved]
  - Pyrexia [Recovered/Resolved]
  - Hypocalcaemia [Recovered/Resolved]
